FAERS Safety Report 17083424 (Version 1)
Quarter: 2019Q4

REPORT INFORMATION
  Report Type: Spontaneous
  Country: US (occurrence: US)
  Receive Date: 20191127
  Receipt Date: 20191127
  Transmission Date: 20200122
  Serious: Yes (Hospitalization)
  Sender: FDA-Public Use
  Company Number: US-SA-2019SA329488

PATIENT
  Age: 27 Year
  Sex: Female

DRUGS (3)
  1. POLYMYXIN B;TRIMETHOPRIM [Concomitant]
  2. PREDNISOLONE. [Concomitant]
     Active Substance: PREDNISOLONE
  3. DUPIXENT [Suspect]
     Active Substance: DUPILUMAB
     Indication: DERMATITIS ATOPIC
     Dosage: 200 MG, QOW
     Route: 058
     Dates: start: 20191025

REACTIONS (2)
  - Surgery [Not Recovered/Not Resolved]
  - Incorrect dose administered [Unknown]

NARRATIVE: CASE EVENT DATE: 20191025
